FAERS Safety Report 12906102 (Version 1)
Quarter: 2016Q4

REPORT INFORMATION
  Report Type: Spontaneous
  Country: US (occurrence: US)
  Receive Date: 20161103
  Receipt Date: 20161103
  Transmission Date: 20170207
  Serious: Yes (Hospitalization)
  Sender: FDA-Public Use
  Company Number: US-PROCTER+GAMBLE-GS16133019

PATIENT
  Age: 51 Year
  Sex: Female

DRUGS (8)
  1. QUETIAPINE. [Concomitant]
     Active Substance: QUETIAPINE
  2. ASPIRIN. [Concomitant]
     Active Substance: ASPIRIN
  3. SPIRONOLACTONE. [Concomitant]
     Active Substance: SPIRONOLACTONE
  4. P+GUNKNONPGCALCARBONATENPGZCAC# [Suspect]
     Active Substance: CALCIUM CARBONATE
     Indication: EPIGASTRIC DISCOMFORT
     Dosage: 3-4 GRAMS OF CALCIUM CARBONATE DAILY FOR A FEW WEEKS
     Route: 048
  5. CARVEDILOL. [Concomitant]
     Active Substance: CARVEDILOL
  6. LISINOPRIL. [Concomitant]
     Active Substance: LISINOPRIL
  7. LITHIUM. [Concomitant]
     Active Substance: LITHIUM
  8. DIGOXIN. [Concomitant]
     Active Substance: DIGOXIN

REACTIONS (15)
  - Epigastric discomfort [Recovering/Resolving]
  - Blood bicarbonate increased [Recovering/Resolving]
  - Electrocardiogram ST segment depression [Recovering/Resolving]
  - Electrocardiogram PR prolongation [Recovered/Resolved]
  - Electrocardiogram ST segment elevation [Recovered/Resolved]
  - Hypercalcaemia [Recovered/Resolved]
  - Renal injury [Unknown]
  - Blood parathyroid hormone decreased [Recovering/Resolving]
  - Asthenia [Recovering/Resolving]
  - Blood creatinine increased [Recovering/Resolving]
  - Blood calcium increased [Recovering/Resolving]
  - Calcium ionised increased [Recovering/Resolving]
  - Milk-alkali syndrome [Recovered/Resolved]
  - Dyspnoea exertional [Recovering/Resolving]
  - Atrioventricular block first degree [Recovered/Resolved]
